FAERS Safety Report 9259968 (Version 1)
Quarter: 2013Q2

REPORT INFORMATION
  Report Type: Spontaneous
  Country: US (occurrence: US)
  Receive Date: 20130429
  Receipt Date: 20130429
  Transmission Date: 20140414
  Serious: Yes (Other)
  Sender: FDA-Public Use
  Company Number: US-JNJFOC-20110306163

PATIENT
  Sex: Female

DRUGS (1)
  1. LEVAQUIN [Suspect]
     Indication: PNEUMONIA
     Route: 048

REACTIONS (5)
  - Meniscus injury [Unknown]
  - Meniscus injury [Recovering/Resolving]
  - Tendon rupture [Unknown]
  - Tendon rupture [Recovering/Resolving]
  - Tendonitis [Unknown]
